FAERS Safety Report 7842098-4 (Version None)
Quarter: 2011Q4

REPORT INFORMATION
  Report Type: 
  Country: None (occurrence: None)
  Receive Date: 20111024
  Receipt Date: 20111024
  Transmission Date: 20120403
  Serious: Yes (Life-Threatening, Hospitalization, Disabling)
  Sender: FDA-Public Use
  Company Number: None

PATIENT
  Age: 53 Year
  Sex: Female
  Weight: 77.1115 kg

DRUGS (3)
  1. GEODON [Suspect]
     Indication: DEPRESSION
     Dosage: ? ONE PILL A DAY FOR ANY
     Dates: start: 20020101, end: 20110101
  2. ABILIFY [Concomitant]
  3. PROLIXIN [Concomitant]

REACTIONS (7)
  - LYMPHOMA [None]
  - RECTAL PROLAPSE [None]
  - BREAST DISORDER [None]
  - GASTROINTESTINAL DISORDER [None]
  - WEIGHT INCREASED [None]
  - THYROID NEOPLASM [None]
  - BREAST CANCER [None]
